FAERS Safety Report 12075369 (Version 1)
Quarter: 2016Q1

REPORT INFORMATION
  Report Type: Spontaneous
  Country: US (occurrence: US)
  Receive Date: 20160213
  Receipt Date: 20160213
  Transmission Date: 20160526
  Serious: Yes (Hospitalization)
  Sender: FDA-Public Use
  Company Number: US-AUROBINDO-AUR-APL-2016-01191

PATIENT
  Age: 42 Year
  Sex: Male

DRUGS (1)
  1. METFORMIN HYDROCHLORIDE TABLETS USP 1000 MG [Suspect]
     Active Substance: METFORMIN HYDROCHLORIDE
     Indication: PRODUCT USED FOR UNKNOWN INDICATION
     Dosage: 270 TABLETS OF 1000 MG EACH
     Route: 065

REACTIONS (8)
  - Respiratory failure [Recovered/Resolved]
  - Intentional overdose [Recovered/Resolved]
  - Lactic acidosis [Recovered/Resolved]
  - Multiple organ dysfunction syndrome [Recovered/Resolved]
  - Acute kidney injury [Recovered/Resolved]
  - Renal failure [Recovered/Resolved]
  - Shock [Recovered/Resolved]
  - Disseminated intravascular coagulation [Recovered/Resolved]
